FAERS Safety Report 8641418 (Version 2)
Quarter: 2012Q4

REPORT INFORMATION
  Report Type: 
  Country: US (occurrence: US)
  Receive Date: 20120628
  Receipt Date: 20121214
  Transmission Date: 20130627
  Serious: Yes (Other)
  Sender: FDA-Public Use
  Company Number: US-ROCHE-784291

PATIENT
  Age: 17 Year
  Sex: Male
  Weight: 81.72 kg

DRUGS (3)
  1. ACCUTANE [Suspect]
     Indication: ACNE
     Route: 065
     Dates: start: 199110, end: 199203
  2. ACCUTANE [Suspect]
     Route: 065
     Dates: start: 199301, end: 199312
  3. ACCUTANE [Suspect]
     Route: 065
     Dates: start: 19940616, end: 19940825

REACTIONS (6)
  - Colitis ulcerative [Unknown]
  - Inflammatory bowel disease [Unknown]
  - Stress [Unknown]
  - Epistaxis [Unknown]
  - Back pain [Unknown]
  - Acne [Unknown]
